FAERS Safety Report 6796995-1 (Version None)
Quarter: 2010Q2

REPORT INFORMATION
  Report Type: 
  Country: None (occurrence: None)
  Receive Date: 20100618
  Receipt Date: 20100610
  Transmission Date: 20101027
  Serious: Yes (Hospitalization)
  Sender: FDA-Public Use
  Company Number: 2010SP032784

PATIENT
  Age: 60 Year
  Sex: Female

DRUGS (6)
  1. MIRTAZAPINE [Suspect]
     Indication: DEPRESSION
     Dosage: 15 MG; QD; PO
     Route: 048
     Dates: start: 20100426, end: 20100503
  2. PROZAC [Suspect]
     Indication: DEPRESSION
     Dosage: PO
     Route: 048
     Dates: start: 20100406, end: 20100416
  3. ALDACTAZINE (ALDACTAZINE) [Suspect]
     Indication: OEDEMA PERIPHERAL
     Dosage: 25 MG; BID; PO
     Route: 048
     Dates: start: 20100416
  4. ESCITALOPRAM [Suspect]
     Indication: DEPRESSION
     Dosage: 20 MG; QD; PO
     Route: 048
     Dates: start: 20100416, end: 20100506
  5. LEVOTHYROXINE SODIUM [Concomitant]
  6. CYMBALTA [Concomitant]

REACTIONS (6)
  - DEPRESSION [None]
  - HYPOKALAEMIA [None]
  - INAPPROPRIATE ANTIDIURETIC HORMONE SECRETION [None]
  - MALAISE [None]
  - OEDEMA PERIPHERAL [None]
  - WEIGHT DECREASED [None]
